FAERS Safety Report 15222747 (Version 1)
Quarter: 2018Q3

REPORT INFORMATION
  Report Type: Report from Study
  Country: US (occurrence: US)
  Receive Date: 20180731
  Receipt Date: 20180731
  Transmission Date: 20181010
  Serious: Yes (Other)
  Sender: FDA-Public Use
  Company Number: US-SHIRE-US201829183

PATIENT
  Age: 65 Year
  Sex: Female

DRUGS (1)
  1. HUMAN NORMAL IMMUNOGLOBULIN; LIQUID 20 [Suspect]
     Active Substance: HUMAN IMMUNOGLOBULIN G
     Indication: PRIMARY IMMUNODEFICIENCY SYNDROME
     Route: 065

REACTIONS (20)
  - Malaise [Unknown]
  - Eye pruritus [Unknown]
  - Pyrexia [Unknown]
  - Immunodeficiency [Unknown]
  - Thyroid disorder [Unknown]
  - Restless legs syndrome [Unknown]
  - Fatigue [Unknown]
  - Feeling cold [Unknown]
  - Pain in extremity [Unknown]
  - Staphylococcal infection [Unknown]
  - Nerve injury [Unknown]
  - Drug hypersensitivity [Unknown]
  - Immunoglobulins decreased [Unknown]
  - White blood cell count decreased [Unknown]
  - Asthenia [Unknown]
  - Chills [Unknown]
  - Nodule [Unknown]
  - Dry eye [Unknown]
  - Oral mucosal blistering [Unknown]
  - Pain [Unknown]

NARRATIVE: CASE EVENT DATE: 20180726
